FAERS Safety Report 24988641 (Version 1)
Quarter: 2025Q1

REPORT INFORMATION
  Report Type: Spontaneous
  Country: CA (occurrence: CA)
  Receive Date: 20250220
  Receipt Date: 20250220
  Transmission Date: 20250409
  Serious: Yes (Other)
  Sender: CSL BEHRING
  Company Number: CA-BEH-2025195967

PATIENT
  Age: 34 Year
  Sex: Female

DRUGS (12)
  1. HUMAN IMMUNOGLOBULIN G [Suspect]
     Active Substance: HUMAN IMMUNOGLOBULIN G
     Indication: Myasthenia gravis
     Dosage: 10 G, QW(1 EVERY 1 WEEKS)
     Route: 058
  2. HUMAN IMMUNOGLOBULIN G [Suspect]
     Active Substance: HUMAN IMMUNOGLOBULIN G
     Dosage: 10 G, QW(1 EVERY 1 WEEKS)
     Route: 065
  3. HUMAN IMMUNOGLOBULIN G [Suspect]
     Active Substance: HUMAN IMMUNOGLOBULIN G
     Dosage: 15 G, QW(1 EVERY 1 WEEKS)
     Route: 065
  4. HUMAN IMMUNOGLOBULIN G [Suspect]
     Active Substance: HUMAN IMMUNOGLOBULIN G
     Dosage: 20 G, QW(1 EVERY 1 WEEKS)
     Route: 058
  5. HUMAN IMMUNOGLOBULIN G [Suspect]
     Active Substance: HUMAN IMMUNOGLOBULIN G
     Dosage: 16 G, QW(1 EVERY 1 WEEKS)
     Route: 065
  6. HUMAN IMMUNOGLOBULIN G [Suspect]
     Active Substance: HUMAN IMMUNOGLOBULIN G
     Dosage: 14 G, QW(1 EVERY 1 WEEKS)
     Route: 065
  7. HUMAN IMMUNOGLOBULIN G [Suspect]
     Active Substance: HUMAN IMMUNOGLOBULIN G
     Dosage: 20 G, QW(1 EVERY 1 WEEKS)
     Route: 065
  8. HUMAN IMMUNOGLOBULIN G [Suspect]
     Active Substance: HUMAN IMMUNOGLOBULIN G
     Dosage: 18 G, QW(1 EVERY 1 WEEKS)
     Route: 065
  9. AZATHIOPRINE SODIUM [Concomitant]
     Active Substance: AZATHIOPRINE SODIUM
     Route: 065
  10. MESTINON [Concomitant]
     Active Substance: PYRIDOSTIGMINE BROMIDE
     Route: 065
  11. PREDNISONE [Concomitant]
     Active Substance: PREDNISONE
     Route: 065
  12. SOLIRIS [Concomitant]
     Active Substance: ECULIZUMAB
     Route: 042

REACTIONS (7)
  - Drug ineffective [Not Recovered/Not Resolved]
  - Drug effect less than expected [Not Recovered/Not Resolved]
  - Myasthenia gravis [Not Recovered/Not Resolved]
  - Weight decreased [Not Recovered/Not Resolved]
  - Weight increased [Not Recovered/Not Resolved]
  - Off label use [Not Recovered/Not Resolved]
  - Off label use [Unknown]
